FAERS Safety Report 4343416-4 (Version None)
Quarter: 2004Q1

REPORT INFORMATION
  Report Type: 
  Country: None (occurrence: None)
  Receive Date: 20040325
  Receipt Date: 20040115
  Transmission Date: 20041129
  Serious: No
  Sender: FDA-Public Use
  Company Number: USA040156641

PATIENT
  Age: 81 Year
  Sex: Male

DRUGS (2)
  1. FORTEO [Suspect]
     Dosage: 20 UG/DAY
     Dates: start: 20031001
  2. MAXZIDE [Concomitant]

REACTIONS (3)
  - HEART RATE INCREASED [None]
  - NAUSEA [None]
  - POLLAKIURIA [None]
